FAERS Safety Report 5375575-9 (Version None)
Quarter: 2007Q2

REPORT INFORMATION
  Report Type: 
  Country: None (occurrence: None)
  Receive Date: 20070629
  Receipt Date: 20070618
  Transmission Date: 20071010
  Serious: Yes (Disabling, Other)
  Sender: FDA-Public Use
  Company Number: JP-ALLERGAN-0706229US

PATIENT
  Age: 61 Year
  Sex: Female

DRUGS (1)
  1. BOTOX INJECTION 100 [Suspect]
     Indication: FACIAL SPASM
     Dosage: 22.5 UNITS, SINGLE
     Route: 030
     Dates: start: 20040801, end: 20040801

REACTIONS (6)
  - CONJUNCTIVAL HYPERAEMIA [None]
  - CORNEAL EPITHELIUM DEFECT [None]
  - CORNEAL EROSION [None]
  - EYE PAIN [None]
  - KERATITIS [None]
  - LAGOPHTHALMOS [None]
